FAERS Safety Report 15126528 (Version 1)
Quarter: 2018Q3

REPORT INFORMATION
  Report Type: Spontaneous
  Country: US (occurrence: US)
  Receive Date: 20180614
  Receipt Date: 20180614
  Transmission Date: 20181010
  Serious: Yes (Death, Hospitalization)
  Sender: FDA-Public Use
  Company Number: None

PATIENT
  Age: 73 Year
  Sex: Female
  Weight: 94 kg

DRUGS (1)
  1. NALOXEGOL OXALATE. [Suspect]
     Active Substance: NALOXEGOL OXALATE
     Dates: end: 20180521

REACTIONS (6)
  - Delirium [None]
  - Heart rate decreased [None]
  - Movement disorder [None]
  - Respiratory depression [None]
  - Cerebral haemorrhage [None]
  - Back pain [None]

NARRATIVE: CASE EVENT DATE: 20180521
